FAERS Safety Report 8401164-5 (Version None)
Quarter: 2012Q2

REPORT INFORMATION
  Report Type: 
  Country: None (occurrence: None)
  Receive Date: 20120530
  Receipt Date: 20120530
  Transmission Date: 20120825
  Serious: Yes (Hospitalization, Disabling)
  Sender: FDA-Public Use
  Company Number: None

PATIENT
  Sex: Male
  Weight: 69.8539 kg

DRUGS (3)
  1. ZITHROMAX [Suspect]
     Indication: PYREXIA
     Dosage: 5 DAYS DAILY PO
     Route: 048
     Dates: start: 20120426, end: 20120501
  2. ZITHROMAX [Suspect]
     Indication: PHARYNGEAL DISORDER
     Dosage: 5 DAYS DAILY PO
     Route: 048
     Dates: start: 20120426, end: 20120501
  3. ZITHROMAX [Suspect]
     Indication: VOMITING
     Dosage: 5 DAYS DAILY PO
     Route: 048
     Dates: start: 20120426, end: 20120501

REACTIONS (3)
  - OEDEMA PERIPHERAL [None]
  - JOINT RANGE OF MOTION DECREASED [None]
  - AKINESIA [None]
